FAERS Safety Report 18985503 (Version 3)
Quarter: 2021Q1

REPORT INFORMATION
  Report Type: Spontaneous
  Country: JP (occurrence: JP)
  Receive Date: 20210309
  Receipt Date: 20210329
  Transmission Date: 20210420
  Serious: Yes (Life-Threatening, Hospitalization, Other)
  Sender: FDA-Public Use
  Company Number: NVSJ2021JP002459

PATIENT
  Age: 15 Year
  Sex: Male

DRUGS (3)
  1. KYMRIAH [Suspect]
     Active Substance: TISAGENLECLEUCEL
     Indication: ACUTE LYMPHOCYTIC LEUKAEMIA RECURRENT
     Dosage: UNK,TOTAL DOSAGE
     Route: 041
     Dates: start: 20201224, end: 20201224
  2. FAMOTIDINE. [Concomitant]
     Active Substance: FAMOTIDINE
     Indication: PROPHYLAXIS
     Dosage: 20 MG, BID
     Route: 042
     Dates: start: 20201228, end: 20210102
  3. OMEPRAZOLE. [Concomitant]
     Active Substance: OMEPRAZOLE
     Indication: PROPHYLAXIS
     Dosage: 20 MG, BID
     Route: 042
     Dates: start: 20210103

REACTIONS (18)
  - Pyrexia [Recovered/Resolved]
  - Hypoxia [Unknown]
  - Respiratory failure [Recovering/Resolving]
  - Tumour lysis syndrome [Recovered/Resolved]
  - Blood lactate dehydrogenase increased [Unknown]
  - Infection [Recovered/Resolved]
  - Coagulopathy [Unknown]
  - Cytokine release syndrome [Recovered/Resolved]
  - Renal impairment [Unknown]
  - Cytokine storm [Unknown]
  - Electrolyte imbalance [Unknown]
  - Blood pressure decreased [Recovering/Resolving]
  - Cytopenia [Unknown]
  - Pulmonary oedema [Unknown]
  - Haemolysis [Recovering/Resolving]
  - Respiratory disorder [Recovering/Resolving]
  - Pleural effusion [Unknown]
  - Chromaturia [Recovering/Resolving]

NARRATIVE: CASE EVENT DATE: 20201228
